FAERS Safety Report 4562401-0 (Version None)
Quarter: 2005Q1

REPORT INFORMATION
  Report Type: 
  Country: None (occurrence: None)
  Receive Date: 20050127
  Receipt Date: 20040617
  Transmission Date: 20050727
  Serious: No
  Sender: FDA-Public Use
  Company Number: US-BRISTOL-MYERS SQUIBB COMPANY-12617957

PATIENT
  Age: 56 Year
  Sex: Female

DRUGS (4)
  1. KENALOG [Suspect]
     Indication: ARTHRALGIA
     Dosage: ROUTE: INJECTION IN RIGHT KNEE
     Route: 051
     Dates: start: 20031001, end: 20031001
  2. DEPO-MEDROL [Suspect]
     Dosage: ROUTE: INJECTION IN HAND
     Route: 051
     Dates: start: 20031001
  3. INSULIN [Concomitant]
  4. PREVACID [Concomitant]

REACTIONS (2)
  - NIPPLE EXUDATE BLOODY [None]
  - POSTMENOPAUSAL HAEMORRHAGE [None]
